FAERS Safety Report 20074187 (Version 2)
Quarter: 2021Q4

REPORT INFORMATION
  Report Type: Report from Study
  Country: CN (occurrence: None)
  Receive Date: 20211116
  Receipt Date: 20211122
  Transmission Date: 20220303
  Serious: Yes (Hospitalization)
  Sender: FDA-Public Use
  Company Number: 2021A806870

PATIENT
  Weight: 62 kg

DRUGS (5)
  1. SAVOLITINIB [Suspect]
     Active Substance: SAVOLITINIB
     Indication: Non-small cell lung cancer metastatic
     Route: 048
     Dates: start: 20210906, end: 20210926
  2. SAVOLITINIB [Suspect]
     Active Substance: SAVOLITINIB
     Indication: Non-small cell lung cancer metastatic
     Route: 048
     Dates: start: 20211018, end: 20211102
  3. SAVOLITINIB [Suspect]
     Active Substance: SAVOLITINIB
     Indication: Non-small cell lung cancer metastatic
     Dosage: 400MG, QD
     Route: 048
     Dates: start: 20211110
  4. MEGESTROL ACETATE DAEWON [Concomitant]
     Indication: Increased appetite
     Route: 065
     Dates: start: 20211027
  5. COMPOUND RED COAT BLOOD [Concomitant]
     Indication: Anaemia prophylaxis
     Route: 048

REACTIONS (2)
  - Hepatic function abnormal [Recovered/Resolved]
  - Pyrexia [Recovered/Resolved]

NARRATIVE: CASE EVENT DATE: 20211102
